FAERS Safety Report 11335605 (Version 3)
Quarter: 2015Q3

REPORT INFORMATION
  Report Type: Spontaneous
  Country: FR (occurrence: FR)
  Receive Date: 20150804
  Receipt Date: 20150908
  Transmission Date: 20151125
  Serious: Yes (Life-Threatening)
  Sender: FDA-Public Use
  Company Number: FR-PFIZER INC-2015257619

PATIENT
  Age: 63 Year
  Sex: Male

DRUGS (27)
  1. PAMIDRONATE DISODIUM. [Concomitant]
     Active Substance: PAMIDRONATE DISODIUM
     Dosage: 60 MG, UNK
     Dates: start: 20150611
  2. PAMIDRONATE DISODIUM. [Concomitant]
     Active Substance: PAMIDRONATE DISODIUM
     Dosage: 60 MG, UNK
     Dates: start: 20150626
  3. WELLVONE [Concomitant]
     Active Substance: ATOVAQUONE
     Dosage: 750 MG, 3X/DAY
     Dates: start: 20150626, end: 20150629
  4. VFEND [Suspect]
     Active Substance: VORICONAZOLE
     Indication: BRONCHOPULMONARY ASPERGILLOSIS
     Dosage: 200 MG, 2X/DAY
     Route: 048
     Dates: start: 20150607, end: 20150709
  5. TARGOCID [Concomitant]
     Active Substance: TEICOPLANIN
     Dosage: 400 MG, DAILY
     Route: 042
     Dates: end: 20150710
  6. LASILIX [Concomitant]
     Active Substance: FUROSEMIDE
     Dosage: 125 MG, DAILY
     Route: 042
     Dates: end: 20150708
  7. WELLVONE [Concomitant]
     Active Substance: ATOVAQUONE
     Dosage: 1500 MG, DAILY
     Dates: end: 20150706
  8. ACUPAN [Concomitant]
     Active Substance: NEFOPAM HYDROCHLORIDE
     Dosage: 80 MG, DAILY
     Route: 042
     Dates: start: 201506, end: 20150701
  9. LASILIX [Concomitant]
     Active Substance: FUROSEMIDE
     Dosage: 250 MG, DAILY
     Route: 042
     Dates: start: 20150615, end: 20150624
  10. SMOFKABIVEN [Concomitant]
     Active Substance: UNSPECIFIED INGREDIENT
     Dosage: 1477 ML, DAILY
     Dates: start: 20150622, end: 20150708
  11. CLAIRYG [Concomitant]
     Active Substance: HUMAN IMMUNOGLOBULIN G
     Dosage: 20 G, DAILY
     Dates: start: 20150701
  12. TAZOCILLINE [Suspect]
     Active Substance: PIPERACILLIN SODIUM\TAZOBACTAM SODIUM
     Indication: BRONCHOPULMONARY ASPERGILLOSIS
     Dosage: 1 DF, 4X/DAY
     Route: 042
     Dates: start: 20150605, end: 20150710
  13. CORTANCYL [Concomitant]
     Active Substance: PREDNISONE
     Dosage: 100 MG, DAILY
     Dates: start: 20150701, end: 20150708
  14. INEXIUM [Concomitant]
     Active Substance: ESOMEPRAZOLE
     Dosage: 20 MG, DAILY
     Dates: start: 20150707, end: 20150708
  15. HUMULINE [Concomitant]
     Dosage: UNK
     Dates: start: 20150708, end: 20150710
  16. SALBUTAMOL [Concomitant]
     Active Substance: ALBUTEROL
     Dosage: UNK
     Dates: start: 20150707
  17. PAMIDRONATE DISODIUM. [Concomitant]
     Active Substance: PAMIDRONATE DISODIUM
     Dosage: 30 MG, UNK
     Dates: start: 20150609
  18. PAMIDRONATE DISODIUM. [Concomitant]
     Active Substance: PAMIDRONATE DISODIUM
     Dosage: 60 MG, UNK
     Dates: start: 20150707
  19. PARACETAMOL [Concomitant]
     Active Substance: ACETAMINOPHEN
     Dosage: 1G TO 4 G IF NEEDED
     Route: 048
     Dates: start: 20150610, end: 20150702
  20. AMBISOME [Concomitant]
     Active Substance: AMPHOTERICIN B
     Dosage: 300 MG, DAILY
     Route: 042
     Dates: start: 20150620, end: 20150629
  21. ZELITREX [Suspect]
     Active Substance: VALACYCLOVIR HYDROCHLORIDE
     Dosage: 500 MG, 2X/DAY
     Route: 048
     Dates: start: 20150615, end: 20150709
  22. ZYLORIC [Concomitant]
     Active Substance: ALLOPURINOL
     Dosage: 200 MG, DAILY
     Dates: start: 20150605, end: 20150708
  23. HYDROCORTISONE. [Concomitant]
     Active Substance: HYDROCORTISONE
     Dosage: 100 MG, DAILY
     Dates: start: 20150620, end: 20150629
  24. VFEND [Suspect]
     Active Substance: VORICONAZOLE
     Indication: BRONCHOPULMONARY ASPERGILLOSIS
     Dosage: 642 MG, 2X/DAY
     Route: 042
     Dates: start: 20150606, end: 20150606
  25. TARGOCID [Concomitant]
     Active Substance: TEICOPLANIN
     Dosage: 400 MG, 2X/DAY
     Route: 042
     Dates: start: 20150706, end: 20150707
  26. PARACETAMOL [Concomitant]
     Active Substance: ACETAMINOPHEN
     Dosage: 1 G, 4X/DAY
     Route: 042
     Dates: end: 20150710
  27. LOXEN [Concomitant]
     Active Substance: NICARDIPINE HYDROCHLORIDE
     Dosage: 1 MG PER HOUR
     Route: 042
     Dates: start: 20150619, end: 20150629

REACTIONS (1)
  - Seizure [Not Recovered/Not Resolved]

NARRATIVE: CASE EVENT DATE: 20150709
